FAERS Safety Report 5630231-4 (Version None)
Quarter: 2008Q1

REPORT INFORMATION
  Report Type: 
  Country: None (occurrence: None)
  Receive Date: 20080219
  Receipt Date: 20080211
  Transmission Date: 20080703
  Serious: Yes (Hospitalization)
  Sender: FDA-Public Use
  Company Number: PHRM2008FR00820

PATIENT
  Age: 63 Year
  Sex: Female

DRUGS (12)
  1. LIORESAL [Suspect]
     Dosage: 5 MG, TID
     Route: 048
     Dates: start: 20071212, end: 20071217
  2. ACETAMINOPHEN [Suspect]
     Dosage: 1 G, TID
     Route: 048
     Dates: start: 20071207, end: 20071217
  3. TAHOR [Concomitant]
  4. DEROXAT [Concomitant]
  5. LEXOMIL [Concomitant]
  6. CORDARONE [Concomitant]
  7. FLECAINIDE ACETATE [Concomitant]
  8. FORLAX [Concomitant]
  9. ARIMIDEX [Concomitant]
  10. LOVENOX [Concomitant]
  11. TROSPIUM [Concomitant]
  12. PREVISCAN [Concomitant]

REACTIONS (9)
  - ALANINE AMINOTRANSFERASE INCREASED [None]
  - ASPARTATE AMINOTRANSFERASE INCREASED [None]
  - BLOOD ALKALINE PHOSPHATASE INCREASED [None]
  - C-REACTIVE PROTEIN INCREASED [None]
  - CHOLESTASIS [None]
  - CYTOLYTIC HEPATITIS [None]
  - GAMMA-GLUTAMYLTRANSFERASE INCREASED [None]
  - HEPATOMEGALY [None]
  - ULTRASOUND LIVER ABNORMAL [None]
